FAERS Safety Report 5714027-0 (Version None)
Quarter: 2008Q2

REPORT INFORMATION
  Report Type: 
  Country: None (occurrence: None)
  Receive Date: 20080422
  Receipt Date: 20080422
  Transmission Date: 20081010
  Serious: Yes (Death)
  Sender: FDA-Public Use
  Company Number: None

PATIENT
  Sex: Female
  Weight: 95.9 kg

DRUGS (3)
  1. CYTARABINE [Suspect]
     Dosage: 201 MG
     Dates: end: 20080303
  2. DAUNORUBICIN HCL [Suspect]
     Dosage: 181 MG
     Dates: end: 20080228
  3. ETOPOSIDE [Suspect]
     Dosage: 201 MG
     Dates: end: 20080228

REACTIONS (11)
  - ASTHENIA [None]
  - BACK PAIN [None]
  - BLOOD CULTURE POSITIVE [None]
  - CARDIO-RESPIRATORY ARREST [None]
  - CONVULSION [None]
  - DYSPNOEA EXERTIONAL [None]
  - ESCHERICHIA INFECTION [None]
  - FATIGUE [None]
  - NO THERAPEUTIC RESPONSE [None]
  - STOMATITIS [None]
  - TACHYCARDIA [None]
